FAERS Safety Report 15775467 (Version 1)
Quarter: 2018Q4

REPORT INFORMATION
  Report Type: Spontaneous
  Country: FR (occurrence: FR)
  Receive Date: 20181231
  Receipt Date: 20181231
  Transmission Date: 20190205
  Serious: Yes (Other)
  Sender: FDA-Public Use
  Company Number: FR-TEVA-2018-FR-992842

PATIENT
  Age: 67 Year
  Sex: Male
  Weight: 87 kg

DRUGS (10)
  1. SEROPLEX [Concomitant]
     Active Substance: ESCITALOPRAM OXALATE
  2. KARDEGIC [Concomitant]
     Active Substance: ASPIRIN DL-LYSINE
  3. ALPRAZOLAM. [Suspect]
     Active Substance: ALPRAZOLAM
     Indication: AGGRESSION
     Dosage: 150 MILLIGRAM DAILY;
     Route: 048
     Dates: start: 2014, end: 20181123
  4. ALFUZOSINE (CHLORHYDRATE D^) [Concomitant]
     Active Substance: ALFUZOSIN HYDROCHLORIDE
  5. INEGY [Concomitant]
     Active Substance: EZETIMIBE\SIMVASTATIN
  6. VALSARTAN. [Concomitant]
     Active Substance: VALSARTAN
  7. GLUCOR [Concomitant]
     Active Substance: ACARBOSE
  8. ABASAGLAR [Concomitant]
     Active Substance: INSULIN GLARGINE
  9. FINASTERIDE. [Concomitant]
     Active Substance: FINASTERIDE
  10. JANUVIA [Concomitant]
     Active Substance: SITAGLIPTIN PHOSPHATE

REACTIONS (1)
  - Hepatic encephalopathy [Recovered/Resolved]

NARRATIVE: CASE EVENT DATE: 20181123
